FAERS Safety Report 11774722 (Version 2)
Quarter: 2016Q1

REPORT INFORMATION
  Report Type: Spontaneous
  Country: DE (occurrence: DE)
  Receive Date: 20151124
  Receipt Date: 20160106
  Transmission Date: 20160525
  Serious: Yes (Hospitalization, Disabling)
  Sender: FDA-Public Use
  Company Number: DE-SA-2015SA188808

PATIENT
  Age: 36 Year
  Sex: Male
  Weight: 66 kg

DRUGS (1)
  1. AUBAGIO [Suspect]
     Active Substance: TERIFLUNOMIDE
     Indication: MULTIPLE SCLEROSIS
     Route: 048
     Dates: start: 20141022, end: 20151026

REACTIONS (12)
  - Nausea [Recovering/Resolving]
  - Pancreas infection [Recovering/Resolving]
  - Abdominal lymphadenopathy [Recovering/Resolving]
  - Urinary retention [Recovering/Resolving]
  - Pancreatitis chronic [Recovering/Resolving]
  - Abdominal pain upper [Recovering/Resolving]
  - Thrombocytosis [Recovering/Resolving]
  - Ureteric compression [Recovering/Resolving]
  - Malaise [Recovering/Resolving]
  - Pancreatic pseudocyst [Recovering/Resolving]
  - Vomiting [Recovering/Resolving]
  - Weight decreased [Recovering/Resolving]

NARRATIVE: CASE EVENT DATE: 2015
